FAERS Safety Report 6150682-1 (Version None)
Quarter: 2009Q2

REPORT INFORMATION
  Report Type: 
  Country: None (occurrence: None)
  Receive Date: 20090408
  Receipt Date: 20090408
  Transmission Date: 20091009
  Serious: Yes (Life-Threatening, Hospitalization)
  Sender: FDA-Public Use
  Company Number: None

PATIENT
  Age: 84 Year
  Sex: Female
  Weight: 93 kg

DRUGS (2)
  1. PACLITAXEL [Suspect]
     Indication: LUNG NEOPLASM MALIGNANT
     Dates: start: 20090403, end: 20090403
  2. PACLITAXEL [Suspect]
     Indication: UTERINE CANCER
     Dates: start: 20090403, end: 20090403

REACTIONS (1)
  - ELECTROMECHANICAL DISSOCIATION [None]
